FAERS Safety Report 8760226 (Version 1)
Quarter: 2012Q4

REPORT INFORMATION
  Report Type: Spontaneous
  Country: US (occurrence: None)
  Receive Date: 20120828
  Receipt Date: 20120828
  Transmission Date: 20130627
  Serious: Yes (Other)
  Sender: FDA-Public Use
  Company Number: None

PATIENT
  Age: 69 Year
  Sex: Female
  Weight: 74.84 kg

DRUGS (1)
  1. FELODIPINE [Suspect]
     Indication: BLOOD PRESSURE HIGH
     Dates: start: 20120228, end: 20120319

REACTIONS (4)
  - Joint swelling [None]
  - Oedema peripheral [None]
  - Fatigue [None]
  - Visual impairment [None]
